APPROVED DRUG PRODUCT: LUMI-SPORYN
Active Ingredient: BACITRACIN ZINC; NEOMYCIN SULFATE; POLYMYXIN B SULFATE
Strength: 400 UNITS/GM;EQ 3.5MG BASE/GM;10,000 UNITS/GM **Federal Register determination that product was not discontinued or withdrawn for s or e reasons**
Dosage Form/Route: OINTMENT;OPHTHALMIC
Application: N050417 | Product #001 | TE Code: AT
Applicant: CASPER PHARMA LLC
Approved: Approved Prior to Jan 1, 1982 | RLD: Yes | RS: No | Type: RX